FAERS Safety Report 5660846-9 (Version None)
Quarter: 2008Q1

REPORT INFORMATION
  Report Type: 
  Country: None (occurrence: None)
  Receive Date: 20080311
  Receipt Date: 20080303
  Transmission Date: 20080703
  Serious: Yes (Hospitalization)
  Sender: FDA-Public Use
  Company Number: AU-ALLERGAN-0802592US

PATIENT
  Sex: Male

DRUGS (2)
  1. BRIMONIDINE UNK [Suspect]
     Indication: GLAUCOMA
     Dosage: 1 GTT, BID
     Route: 047
     Dates: start: 20030101, end: 20050101
  2. DORZOLAMIDE HYDROCHLORIDE W/TIMOLOL MALEATE [Concomitant]
     Dosage: 1 GTT, BID
     Route: 047
     Dates: start: 20030101, end: 20050101

REACTIONS (2)
  - CONJUNCTIVITIS [None]
  - IRIDOCYCLITIS [None]
